FAERS Safety Report 4750010-X (Version None)
Quarter: 2005Q3

REPORT INFORMATION
  Report Type: 
  Country: None (occurrence: None)
  Receive Date: 20050822
  Receipt Date: 20050809
  Transmission Date: 20060218
  Serious: Yes (Hospitalization)
  Sender: FDA-Public Use
  Company Number: B0388809A

PATIENT
  Sex: Male

DRUGS (11)
  1. LITHIUM SALT (FORMULATION UNKNOWN) (GENERIC) (LITHIUM SALT) [Suspect]
     Indication: BIPOLAR DISORDER
  2. AMILORIDE (FORMULATION UNKNOWN) (AMILORIDE) [Suspect]
     Indication: DRUG USE FOR UNKNOWN INDICATION
  3. DIAZEPAM [Suspect]
     Indication: DRUG USE FOR UNKNOWN INDICATION
  4. ZUCLOPENTHIXOL (FORMULATION UNKNOWN) (ZUCLOPENTHIXOL) [Suspect]
     Indication: DRUG USE FOR UNKNOWN INDICATION
  5. CARBAMAZEPINE [Suspect]
     Indication: DRUG USE FOR UNKNOWN INDICATION
  6. ALPRAZOLAM [Concomitant]
  7. VALPROIC ACID [Concomitant]
  8. CARBAMAZEPINE [Concomitant]
  9. HALOPERIDOL [Concomitant]
  10. MODURETIC 5-50 [Concomitant]
  11. PROTHIPENDYL HC1 [Concomitant]

REACTIONS (10)
  - DEHYDRATION [None]
  - DIPLOPIA [None]
  - DISEASE RECURRENCE [None]
  - HYPERKALAEMIA [None]
  - MANIA [None]
  - MULTIPLE DRUG OVERDOSE [None]
  - NEPHROGENIC DIABETES INSIPIDUS [None]
  - NYSTAGMUS [None]
  - RENAL IMPAIRMENT [None]
  - THERAPEUTIC AGENT TOXICITY [None]
